FAERS Safety Report 14953118 (Version 3)
Quarter: 2018Q2

REPORT INFORMATION
  Report Type: Spontaneous
  Country: US (occurrence: US)
  Receive Date: 20180530
  Receipt Date: 20180622
  Transmission Date: 20180711
  Serious: Yes (Other)
  Sender: FDA-Public Use
  Company Number: US-GILEAD-2018-0340114

PATIENT
  Age: 65 Year
  Sex: Female

DRUGS (12)
  1. THYROID [Concomitant]
     Active Substance: LEVOTHYROXINE\LIOTHYRONINE
  2. TARAXACUM OFFICINALE [Concomitant]
     Active Substance: HERBALS\TARAXACUM OFFICINALE
  3. RIBAVIRIN. [Suspect]
     Active Substance: RIBAVIRIN
     Indication: CHRONIC HEPATITIS C
     Dosage: UNK
     Route: 048
     Dates: start: 1999
  4. RIBAVIRIN. [Suspect]
     Active Substance: RIBAVIRIN
     Dosage: UNK
     Route: 048
     Dates: start: 2002
  5. PEGASYS [Suspect]
     Active Substance: PEGINTERFERON ALFA-2A
     Indication: HEPATITIS C
     Dosage: UNK
     Route: 065
     Dates: start: 2003
  6. HARVONI [Suspect]
     Active Substance: LEDIPASVIR\SOFOSBUVIR
     Indication: CHRONIC HEPATITIS C
     Dosage: UNK
     Route: 065
     Dates: start: 201510, end: 201512
  7. VITAMIN B12 [Concomitant]
     Active Substance: CYANOCOBALAMIN
  8. INTERFERON [Suspect]
     Active Substance: INTERFERON
     Dosage: UNK
     Route: 065
     Dates: start: 2002
  9. HARVONI [Suspect]
     Active Substance: LEDIPASVIR\SOFOSBUVIR
     Dosage: UNK
     Route: 065
     Dates: start: 2002, end: 2002
  10. INTERFERON [Suspect]
     Active Substance: INTERFERON
     Indication: PRODUCT USED FOR UNKNOWN INDICATION
     Dosage: 1 DF, Q1WK
     Route: 065
     Dates: start: 1999
  11. RIBAVIRIN. [Suspect]
     Active Substance: RIBAVIRIN
     Dosage: UNK
     Route: 048
     Dates: start: 2000
  12. MILK THISTLE PLUS                  /08512201/ [Concomitant]

REACTIONS (24)
  - Drug ineffective [Unknown]
  - Viral load [Unknown]
  - Fatigue [Unknown]
  - Irritable bowel syndrome [Unknown]
  - Respiration abnormal [Recovering/Resolving]
  - Spinal column stenosis [Unknown]
  - Hepatitis C [Unknown]
  - Therapy non-responder [Unknown]
  - Therapy non-responder [Unknown]
  - Temperature regulation disorder [Not Recovered/Not Resolved]
  - Alopecia [Not Recovered/Not Resolved]
  - Sciatica [Unknown]
  - Plantar fasciitis [Unknown]
  - Weight increased [Unknown]
  - Bronchitis chronic [Unknown]
  - Pain [Unknown]
  - Dislocation of vertebra [Unknown]
  - Injury [Unknown]
  - Thyroid disorder [Unknown]
  - Insomnia [Unknown]
  - Tooth loss [Unknown]
  - Synovial cyst [Unknown]
  - Anger [Unknown]
  - Lung disorder [Unknown]

NARRATIVE: CASE EVENT DATE: 1999
